FAERS Safety Report 5581245-4 (Version None)
Quarter: 2007Q4

REPORT INFORMATION
  Report Type: 
  Country: None (occurrence: None)
  Receive Date: 20071226
  Receipt Date: 20071206
  Transmission Date: 20080405
  Serious: Yes (Hospitalization)
  Sender: FDA-Public Use
  Company Number: 026#4#2007-00002

PATIENT
  Sex: Female

DRUGS (1)
  1. ROTIGOTINE (DOSE UNKNOWN), UNKNOWN (ROTIGOTINE) [Suspect]
     Dosage: RESPIRATORY (PER INHALATION)
     Route: 055

REACTIONS (7)
  - ACCIDENTAL EXPOSURE [None]
  - DIZZINESS [None]
  - DYSPHAGIA [None]
  - HEADACHE [None]
  - NAUSEA [None]
  - OVERDOSE [None]
  - VOMITING [None]
